FAERS Safety Report 5781249-2 (Version None)
Quarter: 2008Q2

REPORT INFORMATION
  Report Type: 
  Country: None (occurrence: None)
  Receive Date: 20080618
  Receipt Date: 20080605
  Transmission Date: 20081010
  Serious: Yes (Death)
  Sender: FDA-Public Use
  Company Number: 2008AL004920

PATIENT
  Age: 45 Year
  Sex: Female

DRUGS (3)
  1. DIGOXIN [Suspect]
     Indication: ARRHYTHMIA
     Dosage: 0.25MG DAILY PO
     Route: 048
  2. DILANTIN [Concomitant]
  3. ALLOPURINOL [Concomitant]

REACTIONS (8)
  - ANOREXIA [None]
  - DIZZINESS [None]
  - HALLUCINATION [None]
  - HEART RATE DECREASED [None]
  - NAUSEA [None]
  - OXYGEN SATURATION DECREASED [None]
  - PALMAR-PLANTAR ERYTHRODYSAESTHESIA SYNDROME [None]
  - URINE OUTPUT DECREASED [None]
